FAERS Safety Report 5442432-9 (Version None)
Quarter: 2007Q3

REPORT INFORMATION
  Report Type: 
  Country: None (occurrence: None)
  Receive Date: 20070904
  Receipt Date: 20070824
  Transmission Date: 20080115
  Serious: Yes (Life-Threatening)
  Sender: FDA-Public Use
  Company Number: JP-PFIZER INC-2007071189

PATIENT
  Age: 63 Year
  Sex: Male
  Weight: 71 kg

DRUGS (9)
  1. KETALAR [Suspect]
     Indication: GENERAL ANAESTHESIA
     Dosage: DAILY DOSE:60MG-FREQ:DAILY
     Route: 042
     Dates: start: 20060904, end: 20060904
  2. MUSCULAX [Suspect]
     Indication: GENERAL ANAESTHESIA
     Dosage: DAILY DOSE:8MG-FREQ:DAILY
     Route: 042
     Dates: start: 20060818, end: 20060905
  3. PROPOFOL [Suspect]
     Indication: GENERAL ANAESTHESIA
     Dosage: DAILY DOSE:100MG-FREQ:DAILY
     Route: 042
     Dates: start: 20060818, end: 20060905
  4. DORMICUM FOR INJECTION [Suspect]
     Indication: GENERAL ANAESTHESIA
     Dosage: DAILY DOSE:3MG-FREQ:DAILY
     Route: 042
     Dates: start: 20060904, end: 20060904
  5. HORIZON [Concomitant]
     Route: 048
     Dates: start: 20060818, end: 20060904
  6. ROXATIDINE ACETATE HCL [Concomitant]
     Route: 048
     Dates: start: 20060818, end: 20060904
  7. NITOROL [Concomitant]
     Route: 042
     Dates: start: 20060904, end: 20060905
  8. SIGMART [Concomitant]
     Route: 042
     Dates: start: 20060904, end: 20060905
  9. HERBESSER ^TANABE^ [Concomitant]
     Route: 042
     Dates: start: 20060904, end: 20060905

REACTIONS (6)
  - ARTERIOSPASM CORONARY [None]
  - AUTONOMIC NERVOUS SYSTEM IMBALANCE [None]
  - CORONARY ARTERY STENOSIS [None]
  - ELECTROMECHANICAL DISSOCIATION [None]
  - SHOCK [None]
  - VENTRICULAR HYPOKINESIA [None]
